FAERS Safety Report 12092078 (Version 1)
Quarter: 2016Q1

REPORT INFORMATION
  Report Type: Spontaneous
  Country: US (occurrence: US)
  Receive Date: 20160219
  Receipt Date: 20160219
  Transmission Date: 20160526
  Serious: Yes (Hospitalization)
  Sender: FDA-Public Use
  Company Number: US-ROCHE-1713698

PATIENT
  Sex: Male

DRUGS (4)
  1. AVASTIN [Suspect]
     Active Substance: BEVACIZUMAB
     Indication: COLORECTAL CANCER METASTATIC
     Route: 065
  2. FOLINIC ACID [Concomitant]
     Active Substance: LEUCOVORIN
  3. FLUOROURACIL. [Concomitant]
     Active Substance: FLUOROURACIL
  4. OXALIPLATIN. [Concomitant]
     Active Substance: OXALIPLATIN

REACTIONS (1)
  - Obstruction [Unknown]
